FAERS Safety Report 6671699-4 (Version None)
Quarter: 2010Q2

REPORT INFORMATION
  Report Type: 
  Country: None (occurrence: None)
  Receive Date: 20100407
  Receipt Date: 20100326
  Transmission Date: 20101027
  Serious: Yes (Other)
  Sender: FDA-Public Use
  Company Number: PHHY2010JP12875

PATIENT

DRUGS (1)
  1. DIOVAN [Suspect]
     Dosage: UNK
     Route: 048
     Dates: start: 20100208, end: 20100301

REACTIONS (1)
  - INTERSTITIAL LUNG DISEASE [None]
